FAERS Safety Report 6644057-6 (Version None)
Quarter: 2010Q1

REPORT INFORMATION
  Report Type: 
  Country: None (occurrence: None)
  Receive Date: 20100322
  Receipt Date: 20100310
  Transmission Date: 20100710
  Serious: Yes (Hospitalization)
  Sender: FDA-Public Use
  Company Number: AU-ELI_LILLY_AND_COMPANY-AU201002004399

PATIENT
  Age: 26 Year
  Sex: Male

DRUGS (4)
  1. ZYPREXA [Suspect]
     Indication: DELUSIONAL DISORDER, PERSECUTORY TYPE
     Dosage: 10 MG, UNK
     Route: 048
     Dates: start: 20091118, end: 20100122
  2. ZYPREXA [Suspect]
     Dosage: 20 MG, UNK
     Route: 048
     Dates: start: 20100122, end: 20100206
  3. LEXAPRO [Concomitant]
     Indication: MAJOR DEPRESSION
     Dosage: 10 MG, UNK
     Dates: start: 20091118, end: 20091222
  4. LEXAPRO [Concomitant]
     Dosage: 20 MG, UNK
     Dates: start: 20091229, end: 20100222

REACTIONS (2)
  - ABNORMAL BEHAVIOUR [None]
  - OBSESSIVE-COMPULSIVE DISORDER [None]
